FAERS Safety Report 10589950 (Version 1)
Quarter: 2014Q4

REPORT INFORMATION
  Report Type: Spontaneous
  Country: CN (occurrence: CN)
  Receive Date: 20141118
  Receipt Date: 20141118
  Transmission Date: 20150529
  Serious: Yes (Death, Other)
  Sender: FDA-Public Use
  Company Number: PHHY2014CN148177

PATIENT
  Age: 67 Year

DRUGS (4)
  1. LETROZOLE. [Suspect]
     Active Substance: LETROZOLE
     Indication: BREAST CANCER
     Route: 062
     Dates: start: 201002, end: 201103
  2. EXEMESTANE. [Concomitant]
     Active Substance: EXEMESTANE
     Indication: ENDOCRINE DISORDER
     Route: 065
     Dates: start: 201202
  3. VINORELBINE [Concomitant]
     Active Substance: VINORELBINE\VINORELBINE TARTRATE
     Indication: BREAST CANCER
     Dosage: 25 MG/M2, (D1, D8, Q3W) FOR 3 COURSES
     Route: 065
  4. EPIRUBICIN [Concomitant]
     Active Substance: EPIRUBICIN
     Indication: BREAST CANCER
     Dosage: 60 MG/M2, (D1, Q3W) FOR 3 COURSES
     Route: 065

REACTIONS (3)
  - Blood creatinine increased [Unknown]
  - Metastases to lymph nodes [Unknown]
  - Renal failure [Fatal]
